FAERS Safety Report 7516913-8 (Version None)
Quarter: 2011Q2

REPORT INFORMATION
  Report Type: 
  Country: None (occurrence: None)
  Receive Date: 20110526
  Receipt Date: 20110526
  Transmission Date: 20111010
  Serious: No
  Sender: FDA-Public Use
  Company Number: None

PATIENT
  Age: 59 Year
  Sex: Female

DRUGS (1)
  1. AMPYRA [Suspect]
     Indication: RELAPSING-REMITTING MULTIPLE SCLEROSIS
     Dosage: 10MG DAILY PO
     Route: 048
     Dates: start: 20110419, end: 20110420

REACTIONS (3)
  - DIZZINESS [None]
  - VOMITING [None]
  - NAUSEA [None]
